FAERS Safety Report 7121327-9 (Version None)
Quarter: 2010Q4

REPORT INFORMATION
  Report Type: 
  Country: None (occurrence: None)
  Receive Date: 20101119
  Receipt Date: 20101119
  Transmission Date: 20110411
  Serious: Yes (Other)
  Sender: FDA-Public Use
  Company Number: None

PATIENT
  Age: 65 Year
  Sex: Female
  Weight: 55.3388 kg

DRUGS (1)
  1. SPIRIVA [Suspect]
     Indication: CHRONIC OBSTRUCTIVE PULMONARY DISEASE
     Dosage: 18MCG PER CAPSULE-30 CAPSULES DAILY INHAL
     Route: 055
     Dates: start: 20090104, end: 20101031

REACTIONS (4)
  - DRUG INEFFECTIVE [None]
  - HAEMOPTYSIS [None]
  - LUNG DISORDER [None]
  - PRODUCT QUALITY ISSUE [None]
